FAERS Safety Report 9124869 (Version 1)
Quarter: 2013Q1

REPORT INFORMATION
  Report Type: Report from Study
  Country: CN (occurrence: CN)
  Receive Date: 20130227
  Receipt Date: 20130227
  Transmission Date: 20140127
  Serious: Yes (Hospitalization)
  Sender: FDA-Public Use
  Company Number: CN-BAXTER-2013BAX006651

PATIENT
  Age: 64 Year
  Sex: Male
  Weight: 74.5 kg

DRUGS (7)
  1. PERITONEAL DIALYSIS SOLUTION (LACTATE- G 1.5%) [Suspect]
     Indication: PERITONEAL DIALYSIS
     Route: 033
  2. PERITONEAL DIALYSIS SOLUTION (LACTATE- G 1.5%) [Suspect]
     Dosage: 2L*1
     Route: 033
     Dates: start: 20120509
  3. PERITONEAL DIALYSIS SOLUTION (LACTATE- G2.5%) [Suspect]
     Indication: PERITONEAL DIALYSIS
     Route: 033
  4. PERITONEAL DIALYSIS SOLUTION (LACTATE- G2.5%) [Suspect]
     Dosage: 2L*2
     Route: 033
     Dates: start: 20120509
  5. ERYTHROPOIETIN [Concomitant]
     Indication: ANAEMIA
     Route: 058
     Dates: start: 20120427
  6. NIFEDIPINE [Concomitant]
     Indication: HYPERTENSION
     Route: 048
     Dates: start: 20120426
  7. METOPROLOL SUCCINATE [Concomitant]
     Indication: HYPERTENSION
     Route: 048
     Dates: start: 20120426

REACTIONS (1)
  - Ultrafiltration failure [Unknown]
